FAERS Safety Report 7410132-1 (Version None)
Quarter: 2011Q2

REPORT INFORMATION
  Report Type: 
  Country: None (occurrence: None)
  Receive Date: 20110412
  Receipt Date: 20110330
  Transmission Date: 20111010
  Serious: Yes (Other)
  Sender: FDA-Public Use
  Company Number: GB-MYLANLABS-2011S1006557

PATIENT
  Age: 54 Year
  Sex: Male

DRUGS (5)
  1. CORTICOSTEROIDS [Concomitant]
     Indication: PRODUCT USED FOR UNKNOWN INDICATION
  2. CYCLOSPORINE [Suspect]
     Indication: ECZEMA
  3. ANTIBIOTICS [Concomitant]
     Indication: PRODUCT USED FOR UNKNOWN INDICATION
  4. ACITRETIN [Concomitant]
     Indication: PRODUCT USED FOR UNKNOWN INDICATION
  5. AZATHIOPRINE [Suspect]
     Indication: ECZEMA

REACTIONS (4)
  - HYPERTENSION [None]
  - MALAISE [None]
  - DIARRHOEA [None]
  - ECZEMA [None]
